FAERS Safety Report 11740171 (Version 2)
Quarter: 2015Q4

REPORT INFORMATION
  Report Type: Spontaneous
  Country: US (occurrence: US)
  Receive Date: 20151110
  Receipt Date: 20151120
  Transmission Date: 20160304
  Serious: No
  Sender: FDA-Public Use
  Company Number: US-ELI_LILLY_AND_COMPANY-US201208009634

PATIENT
  Age: 63 Year
  Sex: Female

DRUGS (6)
  1. FORTEO [Suspect]
     Active Substance: TERIPARATIDE
     Dosage: 20 UG, QD
     Route: 065
  2. FORTEO [Suspect]
     Active Substance: TERIPARATIDE
     Dosage: 20 UG, QD
     Route: 065
  3. NORVASC [Concomitant]
     Active Substance: AMLODIPINE BESYLATE
     Dosage: UNK, UNKNOWN
  4. FORTEO [Suspect]
     Active Substance: TERIPARATIDE
     Indication: OSTEOPOROSIS
     Dosage: 20 UG, QD
     Route: 065
     Dates: start: 20120701
  5. DIOVAN [Concomitant]
     Active Substance: VALSARTAN
     Dosage: UNK, UNKNOWN
  6. CALCIUM [Concomitant]
     Active Substance: CALCIUM
     Dosage: UNK, UNKNOWN

REACTIONS (10)
  - Incorrect product storage [Unknown]
  - Feeling abnormal [Unknown]
  - Dizziness [Recovered/Resolved]
  - Drug dose omission [Unknown]
  - Intervertebral disc disorder [Unknown]
  - Dizziness [Not Recovered/Not Resolved]
  - Arthralgia [Unknown]
  - Oedema peripheral [Unknown]
  - Gait disturbance [Unknown]
  - Pain in extremity [Unknown]

NARRATIVE: CASE EVENT DATE: 20120830
